FAERS Safety Report 4750822-2 (Version None)
Quarter: 2005Q3

REPORT INFORMATION
  Report Type: 
  Country: None (occurrence: None)
  Receive Date: 20050822
  Receipt Date: 20050804
  Transmission Date: 20060218
  Serious: Yes (Congenital Anomaly, Other)
  Sender: FDA-Public Use
  Company Number: 2005-BP-13429RO

PATIENT
  Age: 38 Week
  Sex: Male
  Weight: 2.686 kg

DRUGS (2)
  1. METHOTREXATE [Suspect]
     Indication: ABORTION INDUCED
     Dosage: IN-UTERO EXPOSURE
  2. MISOPROSTOL [Suspect]
     Indication: ABORTION INDUCED
     Dosage: IN-UTERO EXPOSURE

REACTIONS (15)
  - BREECH PRESENTATION [None]
  - CAESAREAN SECTION [None]
  - CLINODACTYLY [None]
  - CONGENITAL EYE DISORDER [None]
  - CONGENITAL HAIR DISORDER [None]
  - CONGENITAL MUSCULOSKELETAL ANOMALY [None]
  - CONGENITAL TONGUE ANOMALY [None]
  - DRUG EXPOSURE DURING PREGNANCY [None]
  - DUBOWITZ SYNDROME [None]
  - FACIAL DYSMORPHISM [None]
  - GROWTH RETARDATION [None]
  - INDUCED ABORTION FAILED [None]
  - JOINT HYPEREXTENSION [None]
  - MICROCEPHALY [None]
  - NOSE DEFORMITY [None]
